FAERS Safety Report 4720862-8 (Version None)
Quarter: 2005Q3

REPORT INFORMATION
  Report Type: 
  Country: None (occurrence: None)
  Receive Date: 20050720
  Receipt Date: 20050708
  Transmission Date: 20060218
  Serious: Yes (Hospitalization)
  Sender: FDA-Public Use
  Company Number: 2005035942

PATIENT
  Age: 91 Year
  Sex: Female

DRUGS (6)
  1. XANAX [Suspect]
     Indication: ILL-DEFINED DISORDER
     Dosage: ORAL
     Route: 048
  2. TRIAMTERIL COMP (HYDROCHLOROTHIAZIDE, TRIAMTERENE) [Concomitant]
     Indication: ILL-DEFINED DISORDER
     Dosage: 1 DF (1 IN  1 D), ORAL
     Route: 048
  3. ISOSORBIDE MONONITRATE [Suspect]
     Indication: ILL-DEFINED DISORDER
     Dosage: 40 MG (20 MG, 2 IN 1 D), ORAL
     Route: 048
  4. OMEPRAZOLE [Suspect]
     Indication: ILL-DEFINED DISORDER
     Dosage: 20 MG (20 MG, 1 IN 1 D), ORAL
     Route: 048
     Dates: end: 20050114
  5. ENALAPRIL MALEATE [Suspect]
     Indication: ILL-DEFINED DISORDER
     Dosage: 10 MG (5 MG, 2 IN 1 D), ORAL
     Route: 048
     Dates: end: 20050114
  6. NICERGOLINE (NICERGOLINE) [Suspect]
     Indication: ILL-DEFINED DISORDER
     Dosage: 30 MG (10 MG, 3 IN 1 D), ORAL
     Route: 048

REACTIONS (1)
  - PEMPHIGOID [None]
